FAERS Safety Report 9838807 (Version 2)
Quarter: 2014Q1

REPORT INFORMATION
  Report Type: Spontaneous
  Country: US (occurrence: US)
  Receive Date: 20140123
  Receipt Date: 20140325
  Transmission Date: 20141002
  Serious: Yes (Other)
  Sender: FDA-Public Use
  Company Number: US-TEVA-457711USA

PATIENT
  Age: 30 Year
  Sex: Female
  Weight: 91.71 kg

DRUGS (2)
  1. PARAGARD 380A [Suspect]
     Indication: CONTRACEPTION
     Route: 015
     Dates: start: 20130726, end: 20140115
  2. PARAGARD 380A [Suspect]
     Route: 015
     Dates: start: 20140115

REACTIONS (6)
  - Device dislocation [Recovered/Resolved]
  - Coital bleeding [Unknown]
  - Metrorrhagia [Unknown]
  - Dyspareunia [Unknown]
  - Device expulsion [Recovered/Resolved]
  - Pelvic pain [Unknown]
